APPROVED DRUG PRODUCT: BARHEMSYS
Active Ingredient: AMISULPRIDE
Strength: 10MG/4ML (2.5MG/ML)
Dosage Form/Route: SOLUTION;INTRAVENOUS
Application: N209510 | Product #002
Applicant: ACACIA PHARMA LTD
Approved: Sep 1, 2020 | RLD: Yes | RS: Yes | Type: RX

PATENTS:
Patent 12005042 | Expires: Feb 9, 2038
Patent 12005042 | Expires: Feb 9, 2038
Patent 12005042 | Expires: Feb 9, 2038
Patent 11357753 | Expires: Feb 9, 2038
Patent 9084765 | Expires: Feb 26, 2034
Patent 9084765 | Expires: Feb 26, 2034
Patent 9889118 | Expires: Mar 10, 2031
Patent 9889118 | Expires: Mar 10, 2031
Patent 9545426 | Expires: Mar 10, 2031
Patent 9545426 | Expires: Mar 10, 2031
Patent 12329740 | Expires: Feb 9, 2038
Patent 12329740 | Expires: Feb 9, 2038
Patent 12194022 | Expires: Mar 10, 2031
Patent 12194022 | Expires: Mar 10, 2031
Patent 9084765 | Expires: Feb 26, 2034
Patent 10525033 | Expires: Mar 10, 2031